FAERS Safety Report 5629754-3 (Version None)
Quarter: 2008Q1

REPORT INFORMATION
  Report Type: 
  Country: None (occurrence: None)
  Receive Date: 20080218
  Receipt Date: 20080212
  Transmission Date: 20080703
  Serious: Yes (Hospitalization, Other)
  Sender: FDA-Public Use
  Company Number: GR-MERCK-0802GRC00003

PATIENT
  Age: 70 Year
  Sex: Male

DRUGS (4)
  1. INVANZ [Suspect]
     Indication: RADICAL PROSTATECTOMY
     Route: 042
     Dates: start: 20080129, end: 20080131
  2. INVANZ [Suspect]
     Indication: PROPHYLAXIS
     Route: 042
     Dates: start: 20080129, end: 20080131
  3. BLOOD CELLS, RED [Concomitant]
     Indication: PROPHYLAXIS
     Route: 042
     Dates: start: 20080129, end: 20080129
  4. GENERAL ANESTHESIA (UNSPECIFIED) [Concomitant]
     Indication: RADICAL PROSTATECTOMY
     Route: 065
     Dates: start: 20080101, end: 20080101

REACTIONS (2)
  - RENAL FAILURE ACUTE [None]
  - RENAL TUBULAR NECROSIS [None]
